FAERS Safety Report 14139217 (Version 1)
Quarter: 2017Q4

REPORT INFORMATION
  Report Type: Spontaneous
  Country: US (occurrence: US)
  Receive Date: 20171028
  Receipt Date: 20171028
  Transmission Date: 20180321
  Serious: Yes (Hospitalization)
  Sender: FDA-Public Use
  Company Number: US-ROCHE-2015103

PATIENT
  Age: 34 Year
  Sex: Male
  Weight: 59.02 kg

DRUGS (1)
  1. ACTIVASE [Suspect]
     Active Substance: ALTEPLASE
     Indication: CEREBROVASCULAR ACCIDENT
     Route: 042
     Dates: start: 20170910, end: 20170910

REACTIONS (8)
  - Deep vein thrombosis [Unknown]
  - Heart valve incompetence [Unknown]
  - Speech disorder [Unknown]
  - Intracranial aneurysm [Unknown]
  - Bacterial infection [Unknown]
  - Motor dysfunction [Unknown]
  - Confusional state [Unknown]
  - Fear [Unknown]

NARRATIVE: CASE EVENT DATE: 20170910
